FAERS Safety Report 9349773 (Version 1)
Quarter: 2013Q2

REPORT INFORMATION
  Report Type: Spontaneous
  Country: TR (occurrence: TR)
  Receive Date: 20130614
  Receipt Date: 20130614
  Transmission Date: 20140414
  Serious: Yes (Death, Other)
  Sender: FDA-Public Use
  Company Number: TR-BAXTER-2013BAX021910

PATIENT
  Age: 9 Month
  Sex: 0

DRUGS (11)
  1. HOLOXAN 500 MG IV [Suspect]
     Indication: NEUROBLASTOMA
     Route: 065
  2. ENDOXAN [Suspect]
     Indication: NEUROBLASTOMA
     Route: 065
  3. VINCRISTINE [Suspect]
     Indication: NEUROBLASTOMA
     Route: 065
  4. ETOPOSIDE [Suspect]
     Indication: NEUROBLASTOMA
     Route: 065
  5. ETOPOSIDE [Suspect]
     Dosage: ON DAY -5 TO -2
     Route: 065
  6. CISPLATIN [Suspect]
     Indication: NEUROBLASTOMA
     Route: 065
  7. DACARBAZINE [Suspect]
     Indication: NEUROBLASTOMA
     Route: 065
  8. ADRIAMYCIN [Suspect]
     Indication: NEUROBLASTOMA
     Route: 065
  9. CARBOPLATIN [Suspect]
     Indication: NEUROBLASTOMA
     Route: 065
  10. UNSPECIFIED INGREDIENT [Suspect]
     Indication: NEUROBLASTOMA
     Route: 065
  11. MELPHALAN [Suspect]
     Indication: NEUROBLASTOMA
     Route: 065

REACTIONS (5)
  - Death [Fatal]
  - Gastrointestinal haemorrhage [Unknown]
  - Adrenal mass [Unknown]
  - Mucosal inflammation [Unknown]
  - Diarrhoea [Unknown]
